FAERS Safety Report 8959548 (Version 1)
Quarter: 2012Q4

REPORT INFORMATION
  Report Type: 
  Country: US (occurrence: US)
  Receive Date: 20121211
  Receipt Date: 20121211
  Transmission Date: 20130627
  Serious: No
  Sender: FDA-Public Use
  Company Number: US-009507513-1212USA001768

PATIENT
  Age: 30 Year
  Sex: Female

DRUGS (1)
  1. CLARITIN-D 24 HOUR [Suspect]
     Indication: SINUS CONGESTION
     Dosage: UNK, Unknown
     Route: 048
     Dates: start: 201211

REACTIONS (1)
  - Drug effect decreased [Unknown]
